FAERS Safety Report 13876688 (Version 1)
Quarter: 2017Q3

REPORT INFORMATION
  Report Type: Report from Study
  Country: NO (occurrence: NO)
  Receive Date: 20170817
  Receipt Date: 20170817
  Transmission Date: 20171127
  Serious: Yes (Hospitalization)
  Sender: FDA-Public Use
  Company Number: NO-ROCHE-1978381

PATIENT

DRUGS (3)
  1. ALTEPLASE. [Suspect]
     Active Substance: ALTEPLASE
     Dosage: REMAINING 90%
     Route: 042
  2. ALTEPLASE. [Suspect]
     Active Substance: ALTEPLASE
     Indication: ISCHAEMIC STROKE
     Dosage: MAXIMUM OF 90 MG, WITH 10% OF THE DOSE
     Route: 040
  3. TENECTEPLASE [Suspect]
     Active Substance: TENECTEPLASE
     Indication: ISCHAEMIC STROKE
     Dosage: MAXIMUM OF 40 MG
     Route: 040

REACTIONS (1)
  - Haemorrhage intracranial [Unknown]
